FAERS Safety Report 16330371 (Version 1)
Quarter: 2019Q2

REPORT INFORMATION
  Report Type: Spontaneous
  Country: US (occurrence: US)
  Receive Date: 20190520
  Receipt Date: 20190520
  Transmission Date: 20190711
  Serious: No
  Sender: FDA-Public Use
  Company Number: US-SHIRE-US201912703

PATIENT
  Age: 49 Year
  Sex: Female

DRUGS (1)
  1. NATPARA (PARATHYROID HORMONE) [Suspect]
     Active Substance: PARATHYROID HORMONE
     Indication: PRODUCT USED FOR UNKNOWN INDICATION
     Dosage: 75 MICROGRAM, 1X/DAY:QD
     Route: 050
     Dates: start: 20190329

REACTIONS (3)
  - Incorrect dose administered by device [Unknown]
  - Energy increased [Unknown]
  - Insomnia [Unknown]

NARRATIVE: CASE EVENT DATE: 20190413
